FAERS Safety Report 15041813 (Version 1)
Quarter: 2018Q2

REPORT INFORMATION
  Report Type: Spontaneous
  Country: US (occurrence: US)
  Receive Date: 20180621
  Receipt Date: 20180621
  Transmission Date: 20180711
  Serious: Yes (Life-Threatening, Hospitalization, Other)
  Sender: FDA-Public Use
  Company Number: US-WEST-WARD PHARMACEUTICALS CORP.-US-H14001-18-05008

PATIENT
  Age: 26 Year
  Sex: Female

DRUGS (1)
  1. CAPECITABINE. [Suspect]
     Active Substance: CAPECITABINE
     Indication: BREAST CANCER METASTATIC
     Dosage: ()
     Route: 065

REACTIONS (9)
  - Progressive multifocal leukoencephalopathy [Unknown]
  - Mucosal inflammation [Unknown]
  - Dysphagia [Unknown]
  - Febrile neutropenia [Unknown]
  - Bacteraemia [Unknown]
  - Rash [Unknown]
  - Odynophagia [Unknown]
  - Neurotoxicity [Unknown]
  - Duodenal ulcer haemorrhage [Unknown]
